FAERS Safety Report 6832283-2 (Version None)
Quarter: 2010Q3

REPORT INFORMATION
  Report Type: 
  Country: None (occurrence: None)
  Receive Date: 20100712
  Receipt Date: 20100701
  Transmission Date: 20110219
  Serious: Yes (Other)
  Sender: FDA-Public Use
  Company Number: US-BAXTER-2010BH010748

PATIENT
  Age: 69 Year
  Sex: Male

DRUGS (2)
  1. HEPARIN SODIUM 1,000 UNITS AND SODIUM CHLORIDE 0.9% [Suspect]
     Indication: FLUSHING
     Route: 016
     Dates: start: 20100419, end: 20100419
  2. SODIUM CHLORIDE 0.9% IN PLASTIC CONTAINER [Concomitant]
     Indication: PRODUCT USED FOR UNKNOWN INDICATION
     Route: 016
     Dates: start: 20100419

REACTIONS (2)
  - NO ADVERSE EVENT [None]
  - THROMBOSIS IN DEVICE [None]
